FAERS Safety Report 7880656-1 (Version None)
Quarter: 2011Q4

REPORT INFORMATION
  Report Type: 
  Country: None (occurrence: None)
  Receive Date: 20111101
  Receipt Date: 20100503
  Transmission Date: 20120403
  Serious: No
  Sender: FDA-Public Use
  Company Number: US-BAYER-201022223NA

PATIENT
  Sex: Female

DRUGS (2)
  1. AVELOX [Suspect]
     Indication: URINARY TRACT INFECTION
     Dosage: UNK
     Route: 048
  2. AVELOX [Suspect]
     Dosage: UNK
     Route: 048
     Dates: start: 20100429, end: 20100429

REACTIONS (5)
  - RASH [None]
  - URTICARIA [None]
  - EAR PRURITUS [None]
  - PRURITUS [None]
  - EAR PAIN [None]
